FAERS Safety Report 9221730 (Version 1)
Quarter: 2013Q1

REPORT INFORMATION
  Report Type: Spontaneous
  Country: US (occurrence: None)
  Receive Date: 20120907
  Receipt Date: 20120907
  Transmission Date: 20140127
  Serious: Yes (Hospitalization)
  Sender: FDA-Public Use
  Company Number: TH-2012-00606

PATIENT
  Age: 40 Year
  Sex: Male

DRUGS (6)
  1. EGRIFTA [Suspect]
     Indication: LIPODYSTROPHY ACQUIRED
     Dosage: 1 IN 1 D
     Dates: start: 201203, end: 201206
  2. VIREAD (TENOFORVIR DISOPROXIL FUMARATE) [Concomitant]
  3. ISENTRESS (RALTEGRAVIR POTASSIUM) [Concomitant]
  4. EPZICCOM (LAMIVUDINE, ABACAVIR SULFATE) [Concomitant]
  5. LAMASIL (TERBINAFINE) [Concomitant]
  6. OMEPRAZOLE (OMEPRAZOLE) [Concomitant]

REACTIONS (1)
  - Pancreatitis [None]
